FAERS Safety Report 22309766 (Version 1)
Quarter: 2023Q2

REPORT INFORMATION
  Report Type: Spontaneous
  Country: US (occurrence: None)
  Receive Date: 20230510
  Receipt Date: 20230510
  Transmission Date: 20230721
  Serious: Yes (Disabling, Other)
  Sender: FDA-Public Use
  Company Number: None

PATIENT
  Age: 46 Year
  Sex: Female
  Weight: 78.75 kg

DRUGS (1)
  1. OFLOXACIN OPHTHALMIC [Suspect]
     Active Substance: OFLOXACIN
     Indication: Corneal abrasion
     Dosage: FREQUENCY : EVERY 4 HOURS;?
     Dates: start: 20210131

REACTIONS (6)
  - Acanthamoeba keratitis [None]
  - Instillation site infection [None]
  - Ulcerative keratitis [None]
  - Blindness unilateral [None]
  - Corneal scar [None]
  - Corneal transplant [None]

NARRATIVE: CASE EVENT DATE: 20210131
